FAERS Safety Report 6358284-9 (Version None)
Quarter: 2009Q3

REPORT INFORMATION
  Report Type: 
  Country: None (occurrence: None)
  Receive Date: 20090916
  Receipt Date: 20090908
  Transmission Date: 20100115
  Serious: Yes (Other)
  Sender: FDA-Public Use
  Company Number: PHHY2009BR38686

PATIENT
  Sex: Female

DRUGS (5)
  1. DIOVAN [Suspect]
     Dosage: 160 MG
  2. CALCIUM [Concomitant]
  3. ALENDRONATE SODIUM [Concomitant]
  4. VIDADEXO [Concomitant]
  5. OFTALM [Concomitant]

REACTIONS (3)
  - ASTIGMATISM [None]
  - CATARACT [None]
  - EYE LASER SURGERY [None]
